FAERS Safety Report 15336044 (Version 1)
Quarter: 2018Q4

REPORT INFORMATION
  Report Type: Spontaneous
  Country: EE (occurrence: EE)
  Receive Date: 20180830
  Receipt Date: 20180830
  Transmission Date: 20190204
  Serious: Yes (Hospitalization, Other)
  Sender: FDA-Public Use
  Company Number: EE-SAKK-2018SA221668AA

PATIENT
  Age: 57 Year

DRUGS (5)
  1. ARAVA [Suspect]
     Active Substance: LEFLUNOMIDE
     Indication: RHEUMATOID ARTHRITIS
     Dosage: 10 MG, QD
     Route: 048
     Dates: start: 20090101
  2. REMICADE [Interacting]
     Active Substance: INFLIXIMAB
     Indication: RHEUMATOID ARTHRITIS
     Dosage: 200 MG, QCY
     Route: 041
     Dates: start: 20120301, end: 20120301
  3. MEDROL [METHYLPREDNISOLONE ACETATE] [Interacting]
     Active Substance: METHYLPREDNISOLONE ACETATE
     Indication: RHEUMATOID ARTHRITIS
     Dosage: 4 MG, QD
     Route: 048
     Dates: start: 1990
  4. METHOTREXATE. [Interacting]
     Active Substance: METHOTREXATE
     Indication: RHEUMATOID ARTHRITIS
     Dosage: 7.5 MG, QW
     Route: 048
     Dates: start: 20090101
  5. REMICADE [Interacting]
     Active Substance: INFLIXIMAB
     Dosage: 200 MG, QCY
     Route: 041
     Dates: start: 20180530, end: 20180530

REACTIONS (2)
  - Adenocarcinoma gastric [Not Recovered/Not Resolved]
  - Drug interaction [Unknown]

NARRATIVE: CASE EVENT DATE: 20180619
